FAERS Safety Report 8196432-9 (Version None)
Quarter: 2012Q1

REPORT INFORMATION
  Report Type: 
  Country: None (occurrence: None)
  Receive Date: 20120309
  Receipt Date: 20120301
  Transmission Date: 20120608
  Serious: Yes (Other)
  Sender: FDA-Public Use
  Company Number: BR-PFIZER INC-2012047081

PATIENT
  Age: 29 Year
  Sex: Male
  Weight: 78 kg

DRUGS (9)
  1. FLUOXETINE HCL [Suspect]
     Indication: ANXIETY
     Dosage: 20 MG, 1X/DAY
  2. GEODON [Suspect]
     Indication: SCHIZOPHRENIA
     Dosage: 40 MG (ONE CAPSULE), EVERY 12 HOURS
     Route: 048
     Dates: start: 20100101
  3. RISPERIDONE [Suspect]
     Indication: SCHIZOPHRENIA
     Dosage: UNK
  4. FINASTERIDE [Concomitant]
     Indication: ALOPECIA
  5. MINOXIDIL [Concomitant]
     Indication: ALOPECIA
  6. GEODON [Suspect]
     Indication: MOOD ALTERED
  7. GEODON [Suspect]
     Indication: DEPRESSION
  8. GEODON [Suspect]
     Indication: ANXIETY
  9. FLUOXETINE HCL [Suspect]
     Indication: DEPRESSION
     Dosage: 40 MG, 1X/DAY

REACTIONS (13)
  - SCHIZOPHRENIA [None]
  - AGITATION [None]
  - ANXIETY [None]
  - WEIGHT INCREASED [None]
  - MOOD ALTERED [None]
  - FEELING ABNORMAL [None]
  - BLOOD PROLACTIN INCREASED [None]
  - NAUSEA [None]
  - MENTAL DISORDER [None]
  - IRRITABILITY [None]
  - EUPHORIC MOOD [None]
  - NERVOUSNESS [None]
  - CHILLS [None]
